FAERS Safety Report 4596523-5 (Version None)
Quarter: 2005Q1

REPORT INFORMATION
  Report Type: 
  Country: None (occurrence: None)
  Receive Date: 20050228
  Receipt Date: 20031230
  Transmission Date: 20050727
  Serious: Yes (Other)
  Sender: FDA-Public Use
  Company Number: 7094

PATIENT
  Age: 27 Year
  Sex: Female

DRUGS (2)
  1. METHOTREXATE [Suspect]
     Indication: CROHN'S DISEASE
     Dosage: 15 MG WEEKLY IM
     Route: 030
  2. METHOTREXATE [Suspect]
     Indication: FISTULA
     Dosage: 15 MG WEEKLY IM
     Route: 030

REACTIONS (4)
  - DRUG INEFFECTIVE [None]
  - DRUG TOXICITY [None]
  - LEUKOPENIA [None]
  - PYREXIA [None]
